FAERS Safety Report 22089546 (Version 1)
Quarter: 2023Q1

REPORT INFORMATION
  Report Type: Spontaneous
  Country: US (occurrence: None)
  Receive Date: 20230311
  Receipt Date: 20230311
  Transmission Date: 20230418
  Serious: Yes (Death)
  Sender: FDA-Public Use
  Company Number: None

PATIENT
  Age: 55 Year
  Sex: Female

DRUGS (3)
  1. TUCATINIB [Suspect]
     Active Substance: TUCATINIB
  2. CAPECITABINE [Suspect]
     Active Substance: CAPECITABINE
  3. TRASTUZUMAB [Suspect]
     Active Substance: TRASTUZUMAB

REACTIONS (16)
  - Pain in extremity [None]
  - Pain in extremity [None]
  - Skin discolouration [None]
  - Pain of skin [None]
  - Skin hypertrophy [None]
  - Skin fissures [None]
  - Blood pressure increased [None]
  - Heart rate increased [None]
  - Malaise [None]
  - Diarrhoea [None]
  - Pain [None]
  - Pyrexia [None]
  - Viral infection [None]
  - Muscular weakness [None]
  - Loss of personal independence in daily activities [None]
  - Sudden death [None]

NARRATIVE: CASE EVENT DATE: 20230225
